FAERS Safety Report 5799519-0 (Version None)
Quarter: 2008Q3

REPORT INFORMATION
  Report Type: 
  Country: None (occurrence: None)
  Receive Date: 20080703
  Receipt Date: 20080630
  Transmission Date: 20090109
  Serious: Yes (Other)
  Sender: FDA-Public Use
  Company Number: ES-TEVA-173608ISR

PATIENT
  Age: 91 Year
  Sex: Female

DRUGS (4)
  1. ENALAPRIL MALEATE [Suspect]
     Indication: HYPERTENSION
  2. MIDAZOLAM HCL [Interacting]
  3. FENTANYL [Interacting]
  4. MEPIVACAINE HCL [Interacting]

REACTIONS (3)
  - DRUG INTERACTION [None]
  - ENCEPHALOPATHY [None]
  - HYPOTENSION [None]
